FAERS Safety Report 7311378-3 (Version None)
Quarter: 2011Q1

REPORT INFORMATION
  Report Type: 
  Country: None (occurrence: None)
  Receive Date: 20110224
  Receipt Date: 20110218
  Transmission Date: 20110831
  Serious: Yes (Hospitalization)
  Sender: FDA-Public Use
  Company Number: IT-PFIZER INC-2011028051

PATIENT
  Age: 40 Year
  Sex: Male

DRUGS (2)
  1. XANAX [Suspect]
     Indication: ANXIETY
     Dosage: 10 MG TOTAL
     Route: 048
     Dates: start: 20110124, end: 20110124
  2. XANAX [Suspect]
     Indication: ALCOHOL USE

REACTIONS (2)
  - SOPOR [None]
  - DRUG ABUSE [None]
